FAERS Safety Report 23404427 (Version 3)
Quarter: 2024Q2

REPORT INFORMATION
  Report Type: Spontaneous
  Country: US (occurrence: US)
  Receive Date: 20240116
  Receipt Date: 20240502
  Transmission Date: 20240716
  Serious: Yes (Other)
  Sender: FDA-Public Use
  Company Number: US-002147023-NVSC2024US007912

PATIENT

DRUGS (1)
  1. COSENTYX [Suspect]
     Active Substance: SECUKINUMAB
     Indication: Autoimmune disorder
     Dosage: UNK
     Route: 065

REACTIONS (2)
  - Device malfunction [Unknown]
  - Incorrect dose administered by device [Unknown]
